FAERS Safety Report 11970581 (Version 1)
Quarter: 2016Q1

REPORT INFORMATION
  Report Type: Spontaneous
  Country: US (occurrence: None)
  Receive Date: 20160126
  Receipt Date: 20160126
  Transmission Date: 20160526
  Serious: Yes (Hospitalization)
  Sender: FDA-Public Use
  Company Number: None

PATIENT
  Age: 58 Year
  Sex: Male
  Weight: 60.33 kg

DRUGS (1)
  1. WARFARIN [Suspect]
     Active Substance: WARFARIN
     Indication: ATRIAL FIBRILLATION
     Dosage: MG
     Route: 048
     Dates: end: 20150818

REACTIONS (9)
  - Haematocrit decreased [None]
  - Gastrointestinal arteriovenous malformation [None]
  - Melaena [None]
  - Haemoglobin decreased [None]
  - Nausea [None]
  - Abdominal pain upper [None]
  - Chronic kidney disease [None]
  - Haematemesis [None]
  - Upper gastrointestinal haemorrhage [None]

NARRATIVE: CASE EVENT DATE: 20150818
